FAERS Safety Report 6150283-5 (Version None)
Quarter: 2009Q2

REPORT INFORMATION
  Report Type: 
  Country: None (occurrence: None)
  Receive Date: 20090409
  Receipt Date: 20090330
  Transmission Date: 20091009
  Serious: Yes (Hospitalization)
  Sender: FDA-Public Use
  Company Number: US-MERCK-0706USA03753

PATIENT
  Age: 78 Year
  Sex: Female

DRUGS (1)
  1. FOSAMAX [Suspect]
     Indication: OSTEOPOROSIS
     Route: 048
     Dates: end: 20040401

REACTIONS (7)
  - BREAST CANCER [None]
  - DENTAL CARIES [None]
  - LOOSE TOOTH [None]
  - ORAL INFECTION [None]
  - PAIN IN JAW [None]
  - POLYP [None]
  - TOOTH FRACTURE [None]
